FAERS Safety Report 18694277 (Version 2)
Quarter: 2021Q4

REPORT INFORMATION
  Report Type: Report from Study
  Country: GB (occurrence: GB)
  Receive Date: 20210104
  Receipt Date: 20211108
  Transmission Date: 20220303
  Serious: No
  Sender: FDA-Public Use
  Company Number: GB-NOVARTISPH-NVSC2020GB346596

PATIENT
  Sex: Male

DRUGS (1)
  1. OMNITROPE [Suspect]
     Active Substance: SOMATROPIN
     Indication: Growth hormone deficiency
     Dosage: 0.4 MG, QD
     Route: 058
     Dates: start: 20151201

REACTIONS (3)
  - Pain [Unknown]
  - Memory impairment [Unknown]
  - Product dose omission issue [Unknown]
